FAERS Safety Report 4413189-5 (Version None)
Quarter: 2004Q3

REPORT INFORMATION
  Report Type: 
  Country: None (occurrence: None)
  Receive Date: 20040802
  Receipt Date: 20040729
  Transmission Date: 20050211
  Serious: Yes (Life-Threatening)
  Sender: FDA-Public Use
  Company Number: FR-GLAXOSMITHKLINE-B0340874B

PATIENT
  Sex: Male

DRUGS (11)
  1. COMBIVIR [Suspect]
     Indication: HIV INFECTION
     Dosage: 1UNIT TWICE PER DAY
  2. VIRACEPT [Suspect]
     Indication: HIV INFECTION
     Dates: end: 20040219
  3. KALETRA [Suspect]
     Indication: HIV INFECTION
     Dosage: 3UNIT TWICE PER DAY
     Dates: start: 20040219
  4. TARDYFERON [Suspect]
  5. FOLIC ACID [Suspect]
  6. FRAXIPARINE [Concomitant]
  7. PENICILLIN G [Concomitant]
  8. PERFALGAN [Concomitant]
  9. LOXEN [Concomitant]
  10. CELESTENE [Concomitant]
  11. AZT [Concomitant]
     Indication: ANTIVIRAL PROPHYLAXIS
     Dates: start: 20040701, end: 20040701

REACTIONS (3)
  - DRUG EXPOSURE DURING PREGNANCY [None]
  - PREMATURE BABY [None]
  - RESPIRATORY DISTRESS [None]
